FAERS Safety Report 4897246-5 (Version None)
Quarter: 2005Q4

REPORT INFORMATION
  Report Type: 
  Country: None (occurrence: None)
  Receive Date: 20051223
  Receipt Date: 20050921
  Transmission Date: 20060501
  Serious: No
  Sender: FDA-Public Use
  Company Number: 05P-163-0311616-00

PATIENT
  Age: 63 Year
  Sex: Female
  Weight: 65.7716 kg

DRUGS (14)
  1. HUMIRA [Suspect]
     Indication: RHEUMATOID ARTHRITIS
     Dosage: 40 MG, 1 IN 2 WK, SUBCUTANEOUS
     Dates: start: 20040101
  2. PROVELLA-14 [Concomitant]
  3. PRAVASTATIN SODIUM [Concomitant]
  4. SPIRONOLACTONE [Concomitant]
  5. ALPRAZOLAM [Concomitant]
  6. POTASSIUM [Concomitant]
  7. FENOFIBRATE [Concomitant]
  8. OXYCODONE [Concomitant]
  9. DIGOXIN [Concomitant]
  10. FUROSEMIDE [Concomitant]
  11. TOPROL [Concomitant]
  12. GLUCOPHAGE [Concomitant]
  13. CALCIUM GLUCONATE [Concomitant]
  14. DIOVAN [Concomitant]

REACTIONS (1)
  - SINUSITIS [None]
